FAERS Safety Report 9304783 (Version 1)
Quarter: 2013Q2

REPORT INFORMATION
  Report Type: Spontaneous
  Country: US (occurrence: US)
  Receive Date: 20130523
  Receipt Date: 20130523
  Transmission Date: 20140414
  Serious: No
  Sender: FDA-Public Use
  Company Number: US-009507513-1305USA010423

PATIENT
  Age: 51 Year
  Sex: Female

DRUGS (12)
  1. SINGULAIR [Suspect]
     Route: 048
  2. ASMANEX TWISTHALER [Suspect]
     Route: 048
  3. CLARITIN-D [Suspect]
     Route: 048
  4. ALLEGRA [Suspect]
  5. ZYRTEC [Suspect]
  6. PREDNISONE [Suspect]
     Dosage: UNK
     Route: 048
  7. FLUTICASONE PROPIONATE [Suspect]
  8. DULERA [Suspect]
     Route: 055
  9. PULMICORT [Suspect]
     Route: 055
  10. SYMBICORT [Suspect]
     Route: 055
  11. ALBUTEROL [Concomitant]
     Indication: ASTHMA
  12. ALBUTEROL [Concomitant]
     Indication: HYPERSENSITIVITY

REACTIONS (6)
  - Weight increased [Unknown]
  - Insomnia [Unknown]
  - Hypersensitivity [Unknown]
  - Gastric disorder [Unknown]
  - Depression [Unknown]
  - Arthralgia [Unknown]
